FAERS Safety Report 4881037-5 (Version None)
Quarter: 2005Q4

REPORT INFORMATION
  Report Type: 
  Country: None (occurrence: None)
  Receive Date: 20051223
  Receipt Date: 20051024
  Transmission Date: 20060501
  Serious: No
  Sender: FDA-Public Use
  Company Number: 05P-163-0315027-00

PATIENT
  Age: 87 Year
  Sex: Male
  Weight: 102 kg

DRUGS (7)
  1. HUMIRA [Suspect]
     Indication: RHEUMATOID ARTHRITIS
     Dosage: 40 MG, 1 IN 2 WK, SUBCUTANEOUS
     Route: 058
     Dates: start: 20050401
  2. CARVEDILOL [Concomitant]
  3. COUMADIN [Concomitant]
  4. ANTIBIOTICS [Concomitant]
  5. LEVOTHYROXINE SODIUM [Concomitant]
  6. FUROSEMIDE [Concomitant]
  7. POTASSIUM CHLORIDE [Concomitant]

REACTIONS (3)
  - DIFFICULTY IN WALKING [None]
  - PAIN IN EXTREMITY [None]
  - SKIN LACERATION [None]
